FAERS Safety Report 26015190 (Version 1)
Quarter: 2025Q4

REPORT INFORMATION
  Report Type: Spontaneous
  Country: US (occurrence: US)
  Receive Date: 20251109
  Receipt Date: 20251109
  Transmission Date: 20260118
  Serious: No
  Sender: JOHNSON AND JOHNSON
  Company Number: US-VIIV HEALTHCARE-US2025138656

PATIENT
  Sex: Female

DRUGS (2)
  1. RILPIVIRINE [Suspect]
     Active Substance: RILPIVIRINE
     Indication: HIV test positive
     Dosage: UNK
     Route: 065
  2. CABOTEGRAVIR [Suspect]
     Active Substance: CABOTEGRAVIR
     Indication: HIV test positive
     Dosage: UNK
     Route: 065

REACTIONS (1)
  - Blood HIV RNA increased [Unknown]
